FAERS Safety Report 8221857-2 (Version None)
Quarter: 2012Q1

REPORT INFORMATION
  Report Type: 
  Country: None (occurrence: None)
  Receive Date: 20120316
  Receipt Date: 20120309
  Transmission Date: 20120608
  Serious: Yes (Other)
  Sender: FDA-Public Use
  Company Number: ADR-2012-00435

PATIENT
  Age: 6 Year
  Sex: Female

DRUGS (2)
  1. BACLOFEN [Suspect]
     Indication: ENCEPHALITIS
     Dosage: 50 MCG/DAY
  2. BACLOFEN [Suspect]
     Indication: DYSTONIA
     Dosage: 50 MCG/DAY

REACTIONS (6)
  - INTRACRANIAL HYPOTENSION [None]
  - HYDROCEPHALUS [None]
  - CEREBROSPINAL FLUID RETENTION [None]
  - IMPLANT SITE EFFUSION [None]
  - MEDICAL DEVICE COMPLICATION [None]
  - MEDICAL DEVICE SITE REACTION [None]
